FAERS Safety Report 4669189-3 (Version None)
Quarter: 2005Q2

REPORT INFORMATION
  Report Type: 
  Country: None (occurrence: None)
  Receive Date: 20050519
  Receipt Date: 20050513
  Transmission Date: 20051028
  Serious: Yes (Hospitalization)
  Sender: FDA-Public Use
  Company Number: STA-AE-05-015

PATIENT
  Age: 71 Year
  Sex: Female

DRUGS (5)
  1. CAPTOPRIL [Suspect]
     Indication: HYPERTENSION
     Dosage: 12.5 MG DAILY ORAL
     Route: 048
     Dates: start: 20030708, end: 20030824
  2. METOPROLOL SUCCINATE [Concomitant]
  3. ASPIRIN [Concomitant]
  4. INSULIN [Concomitant]
  5. REPAGLINIDE [Concomitant]

REACTIONS (1)
  - HYPOGLYCAEMIA [None]
